FAERS Safety Report 16039672 (Version 1)
Quarter: 2019Q1

REPORT INFORMATION
  Report Type: Spontaneous
  Country: US (occurrence: US)
  Receive Date: 20190306
  Receipt Date: 20190306
  Transmission Date: 20190418
  Serious: Yes (Other)
  Sender: FDA-Public Use
  Company Number: US-TEVA-2019-US-1017424

PATIENT
  Sex: Female

DRUGS (1)
  1. QVAR REDIHALER [Suspect]
     Active Substance: BECLOMETHASONE DIPROPIONATE

REACTIONS (6)
  - Cough [Recovered/Resolved]
  - Respiratory tract irritation [Recovered/Resolved]
  - Product substitution issue [Unknown]
  - Device issue [Unknown]
  - Bronchitis [Unknown]
  - Drug effect decreased [Unknown]
